FAERS Safety Report 4982863-4 (Version None)
Quarter: 2006Q2

REPORT INFORMATION
  Report Type: 
  Country: None (occurrence: None)
  Receive Date: 20060420
  Receipt Date: 20060411
  Transmission Date: 20061013
  Serious: Yes (Other)
  Sender: FDA-Public Use
  Company Number: 2006-01443

PATIENT
  Age: 56 Year
  Sex: Male

DRUGS (3)
  1. BUSPIRONE HCL [Suspect]
     Indication: DEPRESSION
     Dosage: 10 MG, BID, ORAL
     Route: 048
  2. FLUOXETINE [Suspect]
     Indication: DEPRESSION
     Dosage: 20 MG, BID, ORAL; SEE IMAGE
     Route: 048
  3. OLANZAPINE [Suspect]
     Dosage: 2.5 MG, QHS, ORAL
     Route: 048

REACTIONS (2)
  - INAPPROPRIATE ANTIDIURETIC HORMONE SECRETION [None]
  - SEROTONIN SYNDROME [None]
